FAERS Safety Report 7016139-0 (Version None)
Quarter: 2010Q3

REPORT INFORMATION
  Report Type: 
  Country: None (occurrence: None)
  Receive Date: 20100927
  Receipt Date: 20100702
  Transmission Date: 20110219
  Serious: No
  Sender: FDA-Public Use
  Company Number: US-ASTRAZENECA-2010SE31027

PATIENT
  Age: 56 Year
  Sex: Female

DRUGS (3)
  1. ARIMIDEX [Suspect]
     Route: 048
     Dates: start: 20090901, end: 20100601
  2. ARIMIDEX [Suspect]
     Route: 048
     Dates: start: 20100601
  3. ADVAIR DISKUS 100/50 [Concomitant]

REACTIONS (4)
  - ARTHRALGIA [None]
  - ENDODONTIC PROCEDURE [None]
  - FACIAL PAIN [None]
  - NEURALGIA [None]
